FAERS Safety Report 18497664 (Version 1)
Quarter: 2020Q4

REPORT INFORMATION
  Report Type: Spontaneous
  Country: US (occurrence: US)
  Receive Date: 20201112
  Receipt Date: 20201112
  Transmission Date: 20210114
  Serious: Yes (Other)
  Sender: FDA-Public Use
  Company Number: US-TEVA-2020-US-1847586

PATIENT
  Sex: Male

DRUGS (12)
  1. OXYCONTIN [Suspect]
     Active Substance: OXYCODONE HYDROCHLORIDE
     Route: 065
  2. OXYCODONE ER TABLETS [Suspect]
     Active Substance: OXYCODONE
     Route: 065
  3. HYDROMORPHONE IR TABLETS [Suspect]
     Active Substance: HYDROMORPHONE
     Route: 065
  4. MORPHINE SULFATE. [Suspect]
     Active Substance: MORPHINE SULFATE
     Route: 065
  5. MS CONTIN [Suspect]
     Active Substance: MORPHINE SULFATE
     Route: 065
  6. BUTRANS [Suspect]
     Active Substance: BUPRENORPHINE
     Route: 065
  7. ACETAMINOPHEN W/OXYCODONE [Suspect]
     Active Substance: ACETAMINOPHEN\OXYCODONE HYDROCHLORIDE
     Route: 065
  8. BUPRENORPHINE. [Suspect]
     Active Substance: BUPRENORPHINE
     Route: 061
  9. TRAMADOL. [Suspect]
     Active Substance: TRAMADOL
     Route: 065
  10. OXYCODONE IR TABLETS [Suspect]
     Active Substance: OXYCODONE
     Route: 065
  11. HYDROCODONE BITARTRATE AND ACETAMINOPHEN [Suspect]
     Active Substance: ACETAMINOPHEN\HYDROCODONE BITARTRATE
     Route: 065
  12. DILAUDID [Suspect]
     Active Substance: HYDROMORPHONE HYDROCHLORIDE
     Route: 065

REACTIONS (6)
  - Amnesia [Unknown]
  - Seizure [Unknown]
  - Multiple injuries [Unknown]
  - Accident [Unknown]
  - Mental disorder [Unknown]
  - Renal disorder [Unknown]
